FAERS Safety Report 8469443-3 (Version None)
Quarter: 2012Q2

REPORT INFORMATION
  Report Type: 
  Country: None (occurrence: None)
  Receive Date: 20120621
  Receipt Date: 20120621
  Transmission Date: 20120825
  Serious: Yes (Life-Threatening)
  Sender: FDA-Public Use
  Company Number: None

PATIENT
  Sex: Female
  Weight: 102.9665 kg

DRUGS (1)
  1. XARELTO [Suspect]
     Indication: SURGERY
     Dosage: 1 TABLET DAILY
     Dates: start: 20120510

REACTIONS (6)
  - ERYTHEMA [None]
  - URTICARIA [None]
  - MYALGIA [None]
  - OEDEMA PERIPHERAL [None]
  - OPEN WOUND [None]
  - CYANOSIS [None]
